FAERS Safety Report 15676971 (Version 3)
Quarter: 2019Q1

REPORT INFORMATION
  Report Type: Report from Study
  Country: US (occurrence: US)
  Receive Date: 20181130
  Receipt Date: 20190221
  Transmission Date: 20190417
  Serious: Yes (Death, Hospitalization, Disabling, Other)
  Sender: FDA-Public Use
  Company Number: US-BAYER-2018-218675

PATIENT
  Age: 60 Year
  Sex: Male
  Weight: 83 kg

DRUGS (14)
  1. LYRICA [Concomitant]
     Active Substance: PREGABALIN
     Dosage: 50 MG, TID
  2. PROCHLORPERAZINE MALEATE. [Concomitant]
     Active Substance: PROCHLORPERAZINE MALEATE
     Indication: NAUSEA
     Dosage: 10 MG
  3. DEXAMETHASONE. [Concomitant]
     Active Substance: DEXAMETHASONE
     Dosage: 4MG
     Route: 048
  4. AUGMENTIN [Concomitant]
     Active Substance: AMOXICILLIN\CLAVULANATE POTASSIUM
     Indication: SINUSITIS
  5. FOLFIRI [Concomitant]
     Active Substance: FLUOROURACIL\IRINOTECAN\LEUCOVORIN
     Dosage: UNK
     Dates: start: 20180927, end: 20181025
  6. LORAZEPAM. [Concomitant]
     Active Substance: LORAZEPAM
     Indication: ANXIETY
     Dosage: 0.5MG
     Route: 048
  7. LIDOCAINE W/PRILOCAINE HYDROCHLORIDE [Concomitant]
     Dosage: 2.5%
  8. CHANTIX [Concomitant]
     Active Substance: VARENICLINE TARTRATE
  9. BEVACIZUMAB. [Concomitant]
     Active Substance: BEVACIZUMAB
  10. PROCHLORPERAZINE. [Concomitant]
     Active Substance: PROCHLORPERAZINE
  11. STIVARGA [Suspect]
     Active Substance: REGORAFENIB
     Indication: COLON CANCER METASTATIC
     Dosage: 160 MG, QD (21 DAYS ON AND 7 DAYS OFF)
     Dates: start: 20181109, end: 20181231
  12. STIVARGA [Suspect]
     Active Substance: REGORAFENIB
     Indication: NEOPLASM MALIGNANT
  13. NORCO [Concomitant]
     Active Substance: ACETAMINOPHEN\HYDROCODONE BITARTRATE
     Indication: PAIN
     Dosage: 10MG-325MG
  14. ZOFRAN [Concomitant]
     Active Substance: ONDANSETRON HYDROCHLORIDE
     Indication: NAUSEA
     Dosage: 8MG
     Route: 048

REACTIONS (12)
  - Lethargy [None]
  - Death [Fatal]
  - Colorectal cancer metastatic [None]
  - Fatigue [Not Recovered/Not Resolved]
  - Cough [None]
  - Carcinoembryonic antigen increased [None]
  - Decreased appetite [Not Recovered/Not Resolved]
  - Tumour associated fever [None]
  - Headache [Recovered/Resolved]
  - Neuropathy peripheral [None]
  - Malignant ascites [None]
  - Hyperbilirubinaemia [None]

NARRATIVE: CASE EVENT DATE: 20181112
